FAERS Safety Report 20961642 (Version 1)
Quarter: 2022Q2

REPORT INFORMATION
  Report Type: Spontaneous
  Country: US (occurrence: None)
  Receive Date: 20220614
  Receipt Date: 20220614
  Transmission Date: 20220720
  Serious: Yes (unspecified)
  Sender: FDA-Public Use
  Company Number: None

PATIENT
  Age: 46 Year
  Sex: Male
  Weight: 99 kg

DRUGS (1)
  1. ADCETRIS [Suspect]
     Active Substance: BRENTUXIMAB VEDOTIN
     Indication: Hodgkin^s disease
     Dosage: OTHER FREQUENCY : Q3WEEKS;?
     Route: 042
     Dates: start: 20220519, end: 20220614

REACTIONS (1)
  - Infusion related reaction [None]

NARRATIVE: CASE EVENT DATE: 20220519
